FAERS Safety Report 5404282-9 (Version None)
Quarter: 2007Q3

REPORT INFORMATION
  Report Type: 
  Country: None (occurrence: None)
  Receive Date: 20070731
  Receipt Date: 20070714
  Transmission Date: 20080115
  Serious: Yes (Other)
  Sender: FDA-Public Use
  Company Number: SPI200700288

PATIENT
  Age: 73 Year
  Sex: Female
  Weight: 65.1 kg

DRUGS (12)
  1. AMITIZA [Suspect]
     Indication: CONSTIPATION
     Dosage: 24 MCG  EVERY FEW DAYS PRN, ORAL
     Route: 048
     Dates: start: 20061201
  2. ASPIRIN [Concomitant]
  3. CALTRATE + VITAMIN D (CALCIUM CARBONATE, COLECALCIFEROL) [Concomitant]
  4. COZAAR [Concomitant]
  5. MULTIVITAMIN [Concomitant]
  6. METAMUCIL (PLANTAGO OVATA) [Concomitant]
  7. MILK OF MAGNESIA TAB [Concomitant]
  8. NEURONTIN [Concomitant]
  9. PREMARIN [Concomitant]
  10. SYNTHROID [Concomitant]
  11. VESICARE [Concomitant]
  12. ANTARA [Concomitant]

REACTIONS (9)
  - AMNESIA [None]
  - CEREBRAL ATROPHY [None]
  - CEREBRAL ISCHAEMIA [None]
  - DIARRHOEA [None]
  - DIZZINESS [None]
  - HYPOTENSION [None]
  - SYNCOPE [None]
  - VISUAL DISTURBANCE [None]
  - VOMITING [None]
